FAERS Safety Report 9881089 (Version 3)
Quarter: 2014Q1

REPORT INFORMATION
  Report Type: Spontaneous
  Country: JP (occurrence: JP)
  Receive Date: 20140207
  Receipt Date: 20140328
  Transmission Date: 20141002
  Serious: Yes (Hospitalization)
  Sender: FDA-Public Use
  Company Number: JP-009507513-1402JPN003222

PATIENT
  Age: 68 Year
  Sex: Male

DRUGS (1)
  1. JANUVIA TABLETS 12.5MG [Suspect]
     Indication: TYPE 2 DIABETES MELLITUS
     Dosage: 50 MG, ONCE A DAY
     Route: 048

REACTIONS (2)
  - Anti-insulin receptor antibody positive [Unknown]
  - Nasopharyngitis [Unknown]
